FAERS Safety Report 6230945-1 (Version None)
Quarter: 2009Q2

REPORT INFORMATION
  Report Type: 
  Country: None (occurrence: None)
  Receive Date: 20090616
  Receipt Date: 20080714
  Transmission Date: 20091009
  Serious: Yes (Death, Hospitalization)
  Sender: FDA-Public Use
  Company Number: MX-NOVOPROD-274808

PATIENT
  Age: 54 Year
  Sex: Male
  Weight: 57.5 kg

DRUGS (1)
  1. LEVEMIR [Suspect]
     Indication: TYPE 2 DIABETES MELLITUS
     Dosage: 45 IU, QD
     Dates: start: 20071116

REACTIONS (3)
  - CARDIAC FAILURE CONGESTIVE [None]
  - GASTROENTERITIS [None]
  - RENAL FAILURE ACUTE [None]
